FAERS Safety Report 19460218 (Version 2)
Quarter: 2021Q3

REPORT INFORMATION
  Report Type: Spontaneous
  Country: AU (occurrence: AU)
  Receive Date: 20210625
  Receipt Date: 20210712
  Transmission Date: 20211014
  Serious: Yes (Death, Life-Threatening, Hospitalization, Other)
  Sender: FDA-Public Use
  Company Number: AU-ORION CORPORATION ORION PHARMA-21_00014857

PATIENT
  Age: 67 Year
  Sex: Female

DRUGS (3)
  1. METHOTREXATE. [Suspect]
     Active Substance: METHOTREXATE
     Indication: RHEUMATOID ARTHRITIS
     Route: 065
     Dates: start: 2012, end: 2019
  2. METHOTREXATE. [Suspect]
     Active Substance: METHOTREXATE
     Dosage: REDUCED
     Route: 065
     Dates: start: 2019, end: 201904
  3. HYDROXYCHLOROQUINE [Suspect]
     Active Substance: HYDROXYCHLOROQUINE
     Indication: RHEUMATOID ARTHRITIS
     Route: 065
     Dates: start: 2012

REACTIONS (4)
  - Acute respiratory distress syndrome [Fatal]
  - Angiocentric lymphoma [Fatal]
  - Epstein-Barr virus associated lymphoproliferative disorder [Fatal]
  - Lung infiltration [Fatal]

NARRATIVE: CASE EVENT DATE: 201810
